FAERS Safety Report 4313051-2 (Version None)
Quarter: 2004Q1

REPORT INFORMATION
  Report Type: 
  Country: None (occurrence: None)
  Receive Date: 20040305
  Receipt Date: 20040305
  Transmission Date: 20041129
  Serious: Yes (Death)
  Sender: FDA-Public Use
  Company Number: None

PATIENT
  Age: 64 Year
  Sex: Male
  Weight: 107.9561 kg

DRUGS (6)
  1. CISPLATIN [Suspect]
     Indication: OESOPHAGEAL CARCINOMA
     Dosage: 30MG/M2 IV DAYS 1, 8, 22,29
     Route: 042
     Dates: start: 20040126
  2. CISPLATIN [Suspect]
     Indication: OESOPHAGEAL CARCINOMA
     Dosage: 30MG/M2 IV DAYS 1, 8, 22,29
     Route: 042
     Dates: start: 20040202
  3. CISPLATIN [Suspect]
     Indication: OESOPHAGEAL CARCINOMA
     Dosage: 30MG/M2 IV DAYS 1, 8, 22,29
     Route: 042
     Dates: start: 20040218
  4. IRINOTECAN [Suspect]
     Indication: OESOPHAGEAL CARCINOMA
     Dosage: 65MG/M2 IV DAYS 1, 8, 22, 29
     Route: 042
     Dates: start: 20040126
  5. IRINOTECAN [Suspect]
     Indication: OESOPHAGEAL CARCINOMA
     Dosage: 65MG/M2 IV DAYS 1, 8, 22, 29
     Route: 042
     Dates: start: 20040202
  6. IRINOTECAN [Suspect]
     Indication: OESOPHAGEAL CARCINOMA
     Dosage: 65MG/M2 IV DAYS 1, 8, 22, 29
     Route: 042
     Dates: start: 20040218

REACTIONS (23)
  - AGITATION [None]
  - ATRIAL FIBRILLATION [None]
  - BACK PAIN [None]
  - BRADYCARDIA [None]
  - BUNDLE BRANCH BLOCK RIGHT [None]
  - CARDIO-RESPIRATORY ARREST [None]
  - COMA [None]
  - CONSTIPATION [None]
  - DEHYDRATION [None]
  - DYSPNOEA [None]
  - HYPERHIDROSIS [None]
  - HYPOTENSION [None]
  - LIVEDO RETICULARIS [None]
  - NAUSEA [None]
  - OESOPHAGITIS [None]
  - OXYGEN SATURATION DECREASED [None]
  - PAIN [None]
  - PANCYTOPENIA [None]
  - PULMONARY EMBOLISM [None]
  - PYREXIA [None]
  - SINUS TACHYCARDIA [None]
  - SYNCOPE [None]
  - TACHYPNOEA [None]
